FAERS Safety Report 9005089 (Version 1)
Quarter: 2013Q1

REPORT INFORMATION
  Report Type: Spontaneous
  Country: US (occurrence: US)
  Receive Date: 20130109
  Receipt Date: 20130109
  Transmission Date: 20140127
  Serious: Yes (Other)
  Sender: FDA-Public Use
  Company Number: US-NAPPMUNDI-USA-2013-0097380

PATIENT
  Sex: Male

DRUGS (1)
  1. BUTRANS [Suspect]
     Route: 062

REACTIONS (2)
  - Surgery [Unknown]
  - Urinary retention [Unknown]
